FAERS Safety Report 6244906-X (Version None)
Quarter: 2009Q2

REPORT INFORMATION
  Report Type: 
  Country: None (occurrence: None)
  Receive Date: 20090625
  Receipt Date: 20090615
  Transmission Date: 20091009
  Serious: Yes (Other)
  Sender: FDA-Public Use
  Company Number: PHHY2009CA18320

PATIENT
  Sex: Female

DRUGS (1)
  1. EXJADE [Suspect]
     Indication: IRON OVERLOAD
     Dosage: 1500 MG, UNK
     Route: 048
     Dates: end: 20090501

REACTIONS (5)
  - CHEST PAIN [None]
  - DEPRESSION [None]
  - HEADACHE [None]
  - INSOMNIA [None]
  - NIGHT SWEATS [None]
